FAERS Safety Report 16788486 (Version 1)
Quarter: 2019Q3

REPORT INFORMATION
  Report Type: Spontaneous
  Country: FR (occurrence: FR)
  Receive Date: 20190910
  Receipt Date: 20190910
  Transmission Date: 20191005
  Serious: Yes (Other)
  Sender: FDA-Public Use
  Company Number: FR-SUN PHARMACEUTICAL INDUSTRIES LTD-2019RR-220290

PATIENT
  Sex: Male

DRUGS (2)
  1. SUMATRIPTAN SUN 6 MG/0,5 ML SOLUTION INJECTABLE [Suspect]
     Active Substance: SUMATRIPTAN
     Indication: PRODUCT USED FOR UNKNOWN INDICATION
     Dosage: 3 DOSAGE FORM, DAILY IN RECURING CRISIS
     Route: 065
  2. SUMATRIPTAN SUN 6 MG/0,5 ML SOLUTION INJECTABLE [Suspect]
     Active Substance: SUMATRIPTAN
     Dosage: 4 DOSAGE FORM EVERY 2 DAYS
     Route: 065

REACTIONS (3)
  - Overdose [Unknown]
  - Product prescribing issue [Unknown]
  - Intentional product misuse [Unknown]
